FAERS Safety Report 6664772-8 (Version None)
Quarter: 2010Q1

REPORT INFORMATION
  Report Type: 
  Country: None (occurrence: None)
  Receive Date: 20100330
  Receipt Date: 20091217
  Transmission Date: 20100710
  Serious: Yes (Other)
  Sender: FDA-Public Use
  Company Number: AUR-APL-2009-01609

PATIENT
  Age: 62 Year
  Sex: Male

DRUGS (1)
  1. MINOCYCLINE HCL [Suspect]
     Indication: LYMPHOMATOID PAPULOSIS
     Dosage: 100 MG - DAILY

REACTIONS (7)
  - APRAXIA [None]
  - COGNITIVE DISORDER [None]
  - CONFUSIONAL STATE [None]
  - DRUG HYPERSENSITIVITY [None]
  - EOSINOPHILIA [None]
  - MALAISE [None]
  - MOBILITY DECREASED [None]
